FAERS Safety Report 21242003 (Version 2)
Quarter: 2022Q3

REPORT INFORMATION
  Report Type: Spontaneous
  Country: US (occurrence: US)
  Receive Date: 20220823
  Receipt Date: 20220830
  Transmission Date: 20221027
  Serious: No
  Sender: FDA-Public Use
  Company Number: US-BRISTOL-MYERS SQUIBB COMPANY-2022-063994

PATIENT
  Age: 83 Year
  Sex: Male

DRUGS (3)
  1. REVLIMID [Suspect]
     Active Substance: LENALIDOMIDE
     Indication: Plasma cell myeloma
     Dosage: EVERY DAY FOR 14 DAYS THEN 7 DAYS OFF FOR A 21 DAY CYCLE
     Route: 048
  2. REVLIMID [Suspect]
     Active Substance: LENALIDOMIDE
     Indication: Spinal cord disorder
     Dosage: 1 DF : 1 CAPSULE?FOR 14 DAYS ON THE 7 DAYS OFF REPEAT EVERY 21 DAYS
     Route: 048
  3. REVLIMID [Suspect]
     Active Substance: LENALIDOMIDE
     Dosage: FREQ: TAKE 1 CAPSULE BY MOUTH EVERY DAY ?FOR 14 DAYS THEN 7 DAYS OFF FOR A 21 DAY CYCLE
     Route: 048

REACTIONS (2)
  - Platelet count abnormal [Unknown]
  - Intentional product use issue [Unknown]
